FAERS Safety Report 24444877 (Version 2)
Quarter: 2024Q4

REPORT INFORMATION
  Report Type: Report from Study
  Country: ZA (occurrence: ZA)
  Receive Date: 20241016
  Receipt Date: 20241017
  Transmission Date: 20250115
  Serious: No
  Sender: ROCHE
  Company Number: ZA-ROCHE-2916242

PATIENT
  Age: 49 Year
  Sex: Female
  Weight: 61.23 kg

DRUGS (1)
  1. MABTHERA [Suspect]
     Active Substance: RITUXIMAB
     Indication: Rheumatoid arthritis
     Dosage: REPEATED 6-MONTHLY, LAST INFUSION BEFORE THIS APPLICATION WAS GIVEN 08/JUN/2023,
     Route: 041
     Dates: start: 201904

REACTIONS (5)
  - C-reactive protein increased [Unknown]
  - Alanine aminotransferase increased [Unknown]
  - COVID-19 [Recovered/Resolved]
  - Off label use [Unknown]
  - Pain [Unknown]

NARRATIVE: CASE EVENT DATE: 20210802
